FAERS Safety Report 6688416-4 (Version None)
Quarter: 2010Q2

REPORT INFORMATION
  Report Type: 
  Country: None (occurrence: None)
  Receive Date: 20100420
  Receipt Date: 20100413
  Transmission Date: 20101027
  Serious: Yes (Death)
  Sender: FDA-Public Use
  Company Number: FR-ELI_LILLY_AND_COMPANY-FR201004001435

PATIENT
  Sex: Female
  Weight: 49 kg

DRUGS (6)
  1. PEMETREXED [Suspect]
     Indication: NON-SMALL CELL LUNG CANCER
     Dosage: 500 MG/M2, UNK
     Route: 042
     Dates: start: 20090818
  2. GEMCITABINE HCL [Suspect]
     Indication: NON-SMALL CELL LUNG CANCER
     Route: 042
     Dates: start: 20081216, end: 20090804
  3. CISPLATIN [Suspect]
     Indication: NON-SMALL CELL LUNG CANCER
     Dosage: UNK, UNK
     Route: 042
     Dates: start: 20081216, end: 20090224
  4. FOLIC ACID [Concomitant]
     Indication: VITAMIN SUPPLEMENTATION
  5. VITAMIN B-12 [Concomitant]
     Indication: VITAMIN SUPPLEMENTATION
  6. DEXAMETHASONE [Concomitant]
     Indication: PROPHYLAXIS

REACTIONS (1)
  - HAEMOPTYSIS [None]
